FAERS Safety Report 6231825-8 (Version None)
Quarter: 2009Q2

REPORT INFORMATION
  Report Type: 
  Country: None (occurrence: None)
  Receive Date: 20090611
  Receipt Date: 20090611
  Transmission Date: 20091009
  Serious: Yes (Death, Life-Threatening, Hospitalization)
  Sender: FDA-Public Use
  Company Number: None

PATIENT
  Age: 73 Year
  Sex: Male
  Weight: 72.5755 kg

DRUGS (2)
  1. HEPARIN [Suspect]
     Indication: THROMBOSIS PROPHYLAXIS
     Dosage: 250ML 7.6ML/HR IV DAILY
     Route: 042
     Dates: start: 20080212, end: 20080304
  2. HEPARIN [Suspect]

REACTIONS (1)
  - CEREBROVASCULAR ACCIDENT [None]
